FAERS Safety Report 16078589 (Version 1)
Quarter: 2019Q1

REPORT INFORMATION
  Report Type: Spontaneous
  Country: AU (occurrence: AU)
  Receive Date: 20190315
  Receipt Date: 20190315
  Transmission Date: 20190418
  Serious: Yes (Other)
  Sender: FDA-Public Use
  Company Number: AU-ELI_LILLY_AND_COMPANY-AU201903003671

PATIENT
  Sex: Male

DRUGS (2)
  1. WARFARIN [Concomitant]
     Active Substance: WARFARIN
     Indication: PRODUCT USED FOR UNKNOWN INDICATION
  2. HUMALOG [Suspect]
     Active Substance: INSULIN LISPRO
     Indication: TYPE 1 DIABETES MELLITUS
     Dosage: 10 IU, TID
     Route: 065
     Dates: start: 2000

REACTIONS (5)
  - Blood glucose increased [Unknown]
  - Cerebrovascular accident [Unknown]
  - Bladder cancer [Unknown]
  - Accidental underdose [Unknown]
  - Hypertension [Unknown]

NARRATIVE: CASE EVENT DATE: 2008
